FAERS Safety Report 13298277 (Version 1)
Quarter: 2017Q1

REPORT INFORMATION
  Report Type: Spontaneous
  Country: US (occurrence: US)
  Receive Date: 20170306
  Receipt Date: 20170306
  Transmission Date: 20170428
  Serious: No
  Sender: FDA-Public Use
  Company Number: US-TEVA-732170ACC

PATIENT
  Age: 73 Year
  Sex: Male

DRUGS (1)
  1. MUCUS DM [Suspect]
     Active Substance: DEXTROMETHORPHAN HYDROBROMIDE\GUAIFENESIN
     Indication: COUGH
     Dosage: 1 DF=GUAIFENESIN 1200 MG/ DEXTROMETHORPHAN HYDROBROMIDE 60 MG; SINGLE
     Route: 048
     Dates: start: 20170111, end: 20170111

REACTIONS (2)
  - Foreign body [Unknown]
  - Retching [Recovered/Resolved]

NARRATIVE: CASE EVENT DATE: 20170111
